FAERS Safety Report 23131780 (Version 2)
Quarter: 2023Q4

REPORT INFORMATION
  Report Type: Report from Study
  Country: US (occurrence: US)
  Receive Date: 20231031
  Receipt Date: 20231211
  Transmission Date: 20240110
  Serious: Yes (Other)
  Sender: FDA-Public Use
  Company Number: US-ABBVIE-5474665

PATIENT
  Age: 63 Year
  Sex: Female

DRUGS (2)
  1. HUMIRA [Suspect]
     Active Substance: ADALIMUMAB
     Indication: Crohn^s disease
     Dosage: LAST ADMIN DATE: 2023
     Route: 058
     Dates: start: 20230205
  2. HUMIRA [Suspect]
     Active Substance: ADALIMUMAB
     Dosage: HUMIRA PEN
     Route: 058
     Dates: start: 20230503

REACTIONS (3)
  - Carpal tunnel syndrome [Unknown]
  - Diarrhoea [Unknown]
  - Procedural pain [Unknown]

NARRATIVE: CASE EVENT DATE: 20231001
